FAERS Safety Report 9743245 (Version 2)
Quarter: 2015Q3

REPORT INFORMATION
  Report Type: Spontaneous
  Country: US (occurrence: US)
  Receive Date: 20131210
  Receipt Date: 20150804
  Transmission Date: 20151125
  Serious: No
  Sender: FDA-Public Use
  Company Number: US-GILEAD-2009-0025120

PATIENT
  Age: 93 Year
  Sex: Male
  Weight: 72.57 kg

DRUGS (13)
  1. LETAIRIS [Suspect]
     Active Substance: AMBRISENTAN
     Indication: PULMONARY ARTERIAL HYPERTENSION
     Route: 048
     Dates: start: 20090630
  2. AVODART [Concomitant]
     Active Substance: DUTASTERIDE
  3. GALANTAMINE. [Concomitant]
     Active Substance: GALANTAMINE
  4. COLCHICINE. [Concomitant]
     Active Substance: COLCHICINE
  5. HUMULIN L [Concomitant]
     Active Substance: INSULIN HUMAN
  6. LEVODOPA/CARBIDOPA [Concomitant]
  7. MULTIGEN [Concomitant]
  8. LASIX [Concomitant]
     Active Substance: FUROSEMIDE
  9. TIMOLOL. [Concomitant]
     Active Substance: TIMOLOL
  10. COUMADIN [Concomitant]
     Active Substance: WARFARIN SODIUM
  11. COREG [Concomitant]
     Active Substance: CARVEDILOL
  12. ALBUTEROL. [Concomitant]
     Active Substance: ALBUTEROL
  13. NOVOLIN L [Concomitant]
     Active Substance: INSULIN HUMAN

REACTIONS (1)
  - Headache [Recovered/Resolved]
